FAERS Safety Report 7817983 (Version 4)
Quarter: 2012Q4

REPORT INFORMATION
  Report Type: 
  Country: DE (occurrence: DE)
  Receive Date: 20110217
  Receipt Date: 20121111
  Transmission Date: 20130627
  Serious: Yes (Life-Threatening, Hospitalization)
  Sender: FDA-Public Use
  Company Number: PHHO2010DE14669

PATIENT
  Age: 46 Year
  Sex: Male

DRUGS (3)
  1. EVEROLIMUS [Suspect]
     Indication: HEART TRANSPLANT
     Dosage: UNK
     Route: 048
  2. SANDIMMUN OPTORAL [Suspect]
     Indication: HEART TRANSPLANT
  3. MYCOPHENOLATE MOFETIL [Suspect]
     Indication: HEART TRANSPLANT

REACTIONS (4)
  - B-cell lymphoma [Recovering/Resolving]
  - Epstein-Barr virus infection [Not Recovered/Not Resolved]
  - Bacterial infection [Recovered/Resolved]
  - C-reactive protein increased [Recovered/Resolved]
